FAERS Safety Report 5610623-X (Version None)
Quarter: 2008Q1

REPORT INFORMATION
  Report Type: 
  Country: None (occurrence: None)
  Receive Date: 20080131
  Receipt Date: 20080131
  Transmission Date: 20080703
  Serious: No
  Sender: FDA-Public Use
  Company Number: None

PATIENT

DRUGS (2)
  1. STERILE WATER [Suspect]
     Dosage: INJECTABLE IV BAG, 1000 ML
  2. SODIUM CHLORIDE INJ [Suspect]
     Dosage: INJECTABLE IV BAG 1000 ML

REACTIONS (3)
  - DRUG DISPENSING ERROR [None]
  - MEDICATION ERROR [None]
  - WRONG DRUG ADMINISTERED [None]
